FAERS Safety Report 9258731 (Version 1)
Quarter: 2013Q1

REPORT INFORMATION
  Report Type: Spontaneous
  Country: US (occurrence: None)
  Receive Date: 20121212
  Receipt Date: 20121212
  Transmission Date: 20140127
  Serious: No
  Sender: FDA-Public Use
  Company Number: 1211USA004117

PATIENT
  Age: 59 Year
  Sex: Male

DRUGS (2)
  1. PEGINTRON [Suspect]
     Indication: HEPATITIS C
     Dates: start: 20111221
  2. RIBAVIRIN [Suspect]
     Indication: HEPATITIS C
     Dates: start: 20111221

REACTIONS (2)
  - Somnolence [None]
  - Malaise [None]
